FAERS Safety Report 8042885-6 (Version None)
Quarter: 2012Q1

REPORT INFORMATION
  Report Type: 
  Country: None (occurrence: None)
  Receive Date: 20120112
  Receipt Date: 20120109
  Transmission Date: 20120608
  Serious: Yes (Other)
  Sender: FDA-Public Use
  Company Number: US-ASTRAZENECA-2011SE78201

PATIENT
  Age: 64 Year
  Sex: Male
  Weight: 77.1 kg

DRUGS (26)
  1. SEROQUEL [Suspect]
     Indication: DEPRESSION
     Route: 048
  2. SEROQUEL [Suspect]
     Route: 048
  3. LEVOTHYROXINE SODIUM [Concomitant]
  4. TERAZOSIN HCL [Concomitant]
  5. SEROQUEL [Suspect]
     Indication: INSOMNIA
     Route: 048
  6. OMEPRAZOLE [Concomitant]
  7. SIMVASTATIN [Concomitant]
  8. GLIMPTIRIPE [Concomitant]
  9. SEROQUEL [Suspect]
     Route: 048
  10. ATIVAN [Concomitant]
  11. CALCIUM [Concomitant]
  12. BENADRYL [Concomitant]
  13. SEROQUEL [Suspect]
     Route: 048
  14. LANTUS [Concomitant]
     Dosage: 54 UNITS DAILY
  15. MEGARED [Concomitant]
  16. SEROQUEL [Suspect]
     Route: 048
  17. HYDROCODONE BITARTRATE [Concomitant]
  18. SEROQUEL [Suspect]
     Indication: SLEEP DISORDER
     Route: 048
  19. ASPIRIN [Concomitant]
  20. LISINOPRIL [Concomitant]
  21. SERTRALINE HYDROCHLORIDE [Concomitant]
  22. SEROQUEL [Suspect]
     Indication: RESTLESSNESS
     Route: 048
  23. MULTI-VITAMINS [Concomitant]
     Dosage: DAILY
  24. WELLBUTRIN [Concomitant]
  25. VITAMIN C [Concomitant]
  26. CYCLOBENZAPRINE [Concomitant]

REACTIONS (3)
  - ROAD TRAFFIC ACCIDENT [None]
  - WRONG TECHNIQUE IN DRUG USAGE PROCESS [None]
  - OFF LABEL USE [None]
